FAERS Safety Report 9753032 (Version 1)
Quarter: 2013Q4

REPORT INFORMATION
  Report Type: Spontaneous
  Country: US (occurrence: US)
  Receive Date: 20131213
  Receipt Date: 20131213
  Transmission Date: 20140711
  Serious: No
  Sender: FDA-Public Use
  Company Number: US-009507513-1312USA005674

PATIENT
  Sex: Female

DRUGS (2)
  1. DULERA [Suspect]
     Indication: ASTHMA
     Dosage: ONE-TWO PUFFS MORNING AND NIGHT
     Route: 055
  2. CRESTOR [Concomitant]
     Dosage: UNK

REACTIONS (1)
  - Nasal congestion [Not Recovered/Not Resolved]
